APPROVED DRUG PRODUCT: E-GLADES
Active Ingredient: ERYTHROMYCIN
Strength: 2%
Dosage Form/Route: GEL;TOPICAL
Application: A065009 | Product #001
Applicant: PHARMOBEDIENT CONSULTING LLC
Approved: Mar 18, 2002 | RLD: No | RS: No | Type: DISCN